FAERS Safety Report 8838778 (Version 2)
Quarter: 2012Q4

REPORT INFORMATION
  Report Type: 
  Country: JP (occurrence: JP)
  Receive Date: 20121012
  Receipt Date: 20121016
  Transmission Date: 20130627
  Serious: Yes (Other)
  Sender: FDA-Public Use
  Company Number: JP-009507513-1210JPN003390

PATIENT
  Age: 96 Year
  Sex: Female

DRUGS (1)
  1. BONALON BAG [Suspect]
     Indication: OSTEOPOROSIS
     Dosage: UNK
     Route: 048
     Dates: start: 2008

REACTIONS (2)
  - Femur fracture [Unknown]
  - Neuralgia [None]
